FAERS Safety Report 6768528-7 (Version None)
Quarter: 2010Q2

REPORT INFORMATION
  Report Type: 
  Country: None (occurrence: None)
  Receive Date: 20100614
  Receipt Date: 20100609
  Transmission Date: 20101027
  Serious: Yes (Life-Threatening)
  Sender: FDA-Public Use
  Company Number: FR-BAXTER-2010BH015547

PATIENT
  Age: 43 Year
  Sex: Female

DRUGS (12)
  1. ENDOXAN BAXTER [Suspect]
     Indication: ACUTE LYMPHOCYTIC LEUKAEMIA
     Route: 042
     Dates: start: 20091224, end: 20091226
  2. ENDOXAN BAXTER [Suspect]
     Route: 042
     Dates: start: 20091210, end: 20091210
  3. ASPARAGINASE [Suspect]
     Indication: ACUTE LYMPHOCYTIC LEUKAEMIA
     Route: 042
     Dates: start: 20091217, end: 20091217
  4. VINCRISTINE SULFATE [Suspect]
     Indication: ACUTE LYMPHOCYTIC LEUKAEMIA
     Route: 042
     Dates: start: 20091210, end: 20091230
  5. DAUNORUBICIN HCL [Suspect]
     Indication: ACUTE LYMPHOCYTIC LEUKAEMIA
     Route: 042
     Dates: start: 20091210, end: 20091212
  6. DAUNORUBICIN HCL [Suspect]
     Route: 042
     Dates: start: 20091224, end: 20091225
  7. CYTARABINE [Suspect]
     Indication: ACUTE LYMPHOCYTIC LEUKAEMIA
     Route: 037
     Dates: start: 20091217, end: 20091217
  8. CYTARABINE [Suspect]
     Route: 037
     Dates: start: 20091210, end: 20091210
  9. METHOTREXATE [Suspect]
     Indication: ACUTE LYMPHOCYTIC LEUKAEMIA
     Route: 037
     Dates: start: 20091217, end: 20091217
  10. METHOTREXATE [Suspect]
     Route: 037
     Dates: start: 20091210, end: 20091210
  11. METHYLPREDNISOLONE [Suspect]
     Indication: ACUTE LYMPHOCYTIC LEUKAEMIA
     Route: 037
     Dates: start: 20091217, end: 20091217
  12. METHYLPREDNISOLONE [Suspect]
     Route: 037
     Dates: start: 20091210, end: 20091210

REACTIONS (2)
  - CEREBRAL VENOUS THROMBOSIS [None]
  - HEMIPLEGIA [None]
